FAERS Safety Report 9835275 (Version 2)
Quarter: 2014Q2

REPORT INFORMATION
  Report Type: Spontaneous
  Country: US (occurrence: US)
  Receive Date: 20140122
  Receipt Date: 20140424
  Transmission Date: 20141212
  Serious: No
  Sender: FDA-Public Use
  Company Number: US-BRISTOL-MYERS SQUIBB COMPANY-19914860

PATIENT
  Age: 74 Year
  Sex: Female
  Weight: 86.17 kg

DRUGS (8)
  1. ELIQUIS [Suspect]
     Indication: ATRIAL FIBRILLATION
     Route: 048
     Dates: start: 20131209
  2. LEVOTHYROXINE [Concomitant]
     Dates: start: 20120404
  3. CARVEDILOL [Concomitant]
     Dosage: 1DF:3.12 UNITS NOS
     Dates: start: 2013
  4. LOSARTAN [Concomitant]
     Dosage: 1DF:50/12.5 UNITS NOS
     Dates: start: 2013
  5. FLECAINIDE [Concomitant]
  6. AMLODIPINE [Concomitant]
     Route: 048
     Dates: start: 20120404
  7. VITAMIN D [Concomitant]
  8. IRON [Concomitant]

REACTIONS (2)
  - Hypertension [Recovering/Resolving]
  - Feeling hot [Not Recovered/Not Resolved]
